FAERS Safety Report 6051436-7 (Version None)
Quarter: 2009Q1

REPORT INFORMATION
  Report Type: 
  Country: None (occurrence: None)
  Receive Date: 20090126
  Receipt Date: 20090116
  Transmission Date: 20090719
  Serious: Yes (Other)
  Sender: FDA-Public Use
  Company Number: FR-AMGEN-UK328713

PATIENT
  Sex: Female
  Weight: 70 kg

DRUGS (1)
  1. ROMIPLOSTIM [Suspect]
     Indication: IDIOPATHIC THROMBOCYTOPENIC PURPURA
     Route: 065

REACTIONS (2)
  - MEDICATION ERROR [None]
  - OVERDOSE [None]
